FAERS Safety Report 20837082 (Version 1)
Quarter: 2022Q2

REPORT INFORMATION
  Report Type: Spontaneous
  Country: TR (occurrence: TR)
  Receive Date: 20220517
  Receipt Date: 20220517
  Transmission Date: 20220721
  Serious: Yes (Hospitalization, Other)
  Sender: FDA-Public Use
  Company Number: TR-SUN PHARMACEUTICAL INDUSTRIES LTD-2022R1-336398

PATIENT
  Age: 15 Year
  Sex: Female

DRUGS (4)
  1. VALPROIC ACID [Suspect]
     Active Substance: VALPROIC ACID
     Indication: Bipolar disorder
     Dosage: UNK
     Route: 065
  2. RISPERIDONE [Concomitant]
     Active Substance: RISPERIDONE
     Indication: Bipolar disorder
     Dosage: UNK
     Route: 065
  3. METHYLPREDNISOLONE [Concomitant]
     Active Substance: METHYLPREDNISOLONE
     Indication: Rash maculo-papular
     Dosage: UNK
     Route: 048
  4. CETIRIZINE [Concomitant]
     Active Substance: CETIRIZINE HYDROCHLORIDE
     Indication: Rash maculo-papular
     Dosage: UNK
     Route: 065

REACTIONS (1)
  - Drug reaction with eosinophilia and systemic symptoms [Recovering/Resolving]
